FAERS Safety Report 5318912-3 (Version None)
Quarter: 2007Q2

REPORT INFORMATION
  Report Type: 
  Country: None (occurrence: None)
  Receive Date: 20070504
  Receipt Date: 20070504
  Transmission Date: 20071010
  Serious: Yes (Death, Hospitalization)
  Sender: FDA-Public Use
  Company Number: None

PATIENT
  Sex: Female
  Weight: 51.75 kg

DRUGS (4)
  1. SPRYCEL [Suspect]
     Indication: POLYCYTHAEMIA VERA
     Dosage: 100 MG DAILY PO
     Route: 048
     Dates: start: 20070501, end: 20070502
  2. COUMADIN [Concomitant]
  3. FOLIC ACID [Concomitant]
  4. VITAMIN B-12 [Concomitant]

REACTIONS (6)
  - CYANOSIS [None]
  - HYPERHIDROSIS [None]
  - LUNG INFILTRATION [None]
  - NAUSEA [None]
  - RESPIRATORY DISTRESS [None]
  - VOMITING [None]
